FAERS Safety Report 14977410 (Version 1)
Quarter: 2018Q2

REPORT INFORMATION
  Report Type: Spontaneous
  Country: US (occurrence: US)
  Receive Date: 20180606
  Receipt Date: 20180606
  Transmission Date: 20180711
  Serious: No
  Sender: FDA-Public Use
  Company Number: US-ELI_LILLY_AND_COMPANY-US201806000793

PATIENT
  Age: 70 Year
  Sex: Female

DRUGS (2)
  1. DOXORUBICIN [Concomitant]
     Active Substance: DOXORUBICIN
     Indication: UTERINE LEIOMYOSARCOMA
     Dosage: UNK
     Route: 065
  2. LARTRUVO [Suspect]
     Active Substance: OLARATUMAB
     Indication: UTERINE LEIOMYOSARCOMA
     Dosage: 15 MG/KG, UNK
     Route: 042

REACTIONS (1)
  - Nausea [Recovering/Resolving]
